FAERS Safety Report 25559551 (Version 1)
Quarter: 2025Q3

REPORT INFORMATION
  Report Type: Spontaneous
  Country: US (occurrence: US)
  Receive Date: 20250715
  Receipt Date: 20250715
  Transmission Date: 20251021
  Serious: No
  Sender: NOVO NORDISK
  Company Number: US-NOVOPROD-1419469

PATIENT
  Age: 27 Year
  Sex: Female
  Weight: 145 kg

DRUGS (2)
  1. OZEMPIC [Suspect]
     Active Substance: SEMAGLUTIDE
     Indication: Weight control
  2. OZEMPIC [Suspect]
     Active Substance: SEMAGLUTIDE
     Indication: Blood glucose normal

REACTIONS (5)
  - Influenza [Unknown]
  - Brain fog [Unknown]
  - Illness [Unknown]
  - Fatigue [Unknown]
  - Fatigue [Unknown]
